FAERS Safety Report 20504051 (Version 1)
Quarter: 2022Q1

REPORT INFORMATION
  Report Type: Spontaneous
  Country: US (occurrence: US)
  Receive Date: 20220222
  Receipt Date: 20220222
  Transmission Date: 20220423
  Serious: Yes (Other)
  Sender: FDA-Public Use
  Company Number: US-PFIZER INC-202200230003

PATIENT
  Age: 61 Year
  Sex: Male
  Weight: 73.923 kg

DRUGS (7)
  1. TORISEL [Suspect]
     Active Substance: TEMSIROLIMUS
     Indication: Pain
     Dosage: UNK
     Route: 042
  2. MORPHINE SULFATE [Suspect]
     Active Substance: MORPHINE SULFATE
     Indication: Pain
     Dosage: UNK
  3. LENVIMA [Suspect]
     Active Substance: LENVATINIB
     Indication: Renal cell carcinoma
     Dosage: 14 MG, 1X/DAY
     Route: 048
     Dates: start: 20220114
  4. LENVIMA [Suspect]
     Active Substance: LENVATINIB
     Indication: Renal cancer
  5. LENVIMA [Suspect]
     Active Substance: LENVATINIB
     Indication: Lung neoplasm malignant
  6. METHADONE [Suspect]
     Active Substance: METHADONE HYDROCHLORIDE
     Dosage: UNK
  7. TYLENOL [Suspect]
     Active Substance: ACETAMINOPHEN
     Indication: Pain
     Dosage: UNK

REACTIONS (12)
  - Pulmonary embolism [Unknown]
  - Pyrexia [Unknown]
  - Decreased appetite [Unknown]
  - Swelling [Unknown]
  - Epistaxis [Unknown]
  - Productive cough [Unknown]
  - Stomatitis [Unknown]
  - Asthenia [Unknown]
  - Diarrhoea [Unknown]
  - Abdominal pain [Unknown]
  - Skin discolouration [Unknown]
  - Neoplasm progression [Unknown]
